FAERS Safety Report 13962845 (Version 3)
Quarter: 2018Q2

REPORT INFORMATION
  Report Type: Spontaneous
  Country: DE (occurrence: DE)
  Receive Date: 20170913
  Receipt Date: 20180621
  Transmission Date: 20180711
  Serious: Yes (Death, Life-Threatening, Other)
  Sender: FDA-Public Use
  Company Number: DE-WEST-WARD PHARMACEUTICALS CORP.-DE-H14001-17-03411

PATIENT
  Age: 26 Day
  Sex: Female
  Weight: 2.85 kg

DRUGS (5)
  1. PIPERACILLIN AND TAZOBACTAM [Concomitant]
     Active Substance: PIPERACILLIN SODIUM\TAZOBACTAM SODIUM
     Indication: FUNGAL PERITONITIS
     Route: 065
  2. MEROPENEM. [Concomitant]
     Active Substance: MEROPENEM
     Indication: SEPSIS
     Route: 065
  3. VANCOMYCIN [Concomitant]
     Active Substance: VANCOMYCIN
     Indication: SEPSIS
     Route: 065
  4. FLUCONAZOLE. [Suspect]
     Active Substance: FLUCONAZOLE
     Indication: FUNGAL PERITONITIS
     Route: 065
  5. ALPROSTADIL. [Concomitant]
     Active Substance: ALPROSTADIL
     Indication: HYPOPLASTIC LEFT HEART SYNDROME
     Route: 065

REACTIONS (8)
  - Septic shock [Fatal]
  - Peritonitis [Fatal]
  - Capillary leak syndrome [Fatal]
  - Generalised oedema [Fatal]
  - Condition aggravated [Fatal]
  - Fungal infection [Fatal]
  - Drug resistance [Fatal]
  - Multiple organ dysfunction syndrome [Fatal]
